FAERS Safety Report 9190992 (Version 2)
Quarter: 2013Q1

REPORT INFORMATION
  Report Type: Report from Study
  Country: JP (occurrence: JP)
  Receive Date: 20130326
  Receipt Date: 20130328
  Transmission Date: 20140127
  Serious: Yes (Other)
  Sender: FDA-Public Use
  Company Number: JP-BAXTER-2013BAX010313

PATIENT
  Sex: 0

DRUGS (3)
  1. KIOVIG HUMAN NORMAL IMMUNOGLOBULIN (IVIG) 10% [Suspect]
     Indication: KAWASAKI^S DISEASE
     Dosage: 2 G/KG
     Route: 042
  2. ASPIRIN [Concomitant]
     Indication: PYREXIA
     Route: 065
  3. ASPIRIN [Concomitant]
     Indication: PRODUCT USED FOR UNKNOWN INDICATION
     Dosage: 3-5 MG/KG
     Route: 065

REACTIONS (1)
  - Coronary artery aneurysm [Unknown]
